FAERS Safety Report 6413140-2 (Version None)
Quarter: 2009Q4

REPORT INFORMATION
  Report Type: 
  Country: None (occurrence: None)
  Receive Date: 20091022
  Receipt Date: 20091022
  Transmission Date: 20100525
  Serious: Yes (Hospitalization)
  Sender: FDA-Public Use
  Company Number: None

PATIENT
  Age: 60 Year
  Sex: Male

DRUGS (1)
  1. SALSALATE [Suspect]
     Dosage: 1500 MG BID PO
     Route: 048
     Dates: start: 20090721

REACTIONS (1)
  - GASTROINTESTINAL HAEMORRHAGE [None]
